FAERS Safety Report 20487977 (Version 4)
Quarter: 2022Q2

REPORT INFORMATION
  Report Type: Spontaneous
  Country: JP (occurrence: JP)
  Receive Date: 20220218
  Receipt Date: 20220408
  Transmission Date: 20220721
  Serious: Yes (Death)
  Sender: FDA-Public Use
  Company Number: JP-UCBJ-CD202201266UCBPHAPROD

PATIENT
  Age: 46 Year
  Sex: Female
  Weight: 47 kg

DRUGS (2)
  1. VIMPAT [Suspect]
     Active Substance: LACOSAMIDE
     Indication: Epilepsy
     Dosage: 100 MILLIGRAM, 2X/DAY (BID)
     Route: 048
     Dates: start: 20200324, end: 20200919
  2. VIMPAT [Suspect]
     Active Substance: LACOSAMIDE
     Dosage: 200 MILLIGRAM, 2X/DAY (BID)
     Route: 048
     Dates: start: 20200920, end: 20210930

REACTIONS (3)
  - Uterine neoplasm [Fatal]
  - Uterine rupture [Fatal]
  - Peritoneal adhesions [Fatal]

NARRATIVE: CASE EVENT DATE: 20210930
